FAERS Safety Report 12138947 (Version 2)
Quarter: 2016Q1

REPORT INFORMATION
  Report Type: Report from Study
  Country: US (occurrence: US)
  Receive Date: 20160302
  Receipt Date: 20160310
  Transmission Date: 20160526
  Serious: Yes (Other)
  Sender: FDA-Public Use
  Company Number: US-ABBVIE-16P-163-1571944-00

PATIENT
  Age: 37 Year
  Sex: Female

DRUGS (6)
  1. LUPRON DEPOT [Suspect]
     Active Substance: LEUPROLIDE ACETATE
     Indication: ENDOMETRIOSIS
     Route: 065
     Dates: start: 2005
  2. LUPRON DEPOT [Suspect]
     Active Substance: LEUPROLIDE ACETATE
     Indication: ENDOMETRIOSIS
     Dosage: BED TIME
     Route: 065
     Dates: start: 20160204
  3. PANTOPRAZOLE [Concomitant]
     Active Substance: PANTOPRAZOLE SODIUM
     Indication: GASTRIC ULCER
     Route: 048
  4. LISINOPRIL. [Concomitant]
     Active Substance: LISINOPRIL
     Indication: HYPERTENSION
     Route: 048
  5. NORETHINDRONE ACETATE. [Suspect]
     Active Substance: NORETHINDRONE ACETATE
     Indication: PRODUCT USED FOR UNKNOWN INDICATION
     Route: 048
     Dates: start: 20160204, end: 20160223
  6. AMLODIPINE [Concomitant]
     Active Substance: AMLODIPINE BESYLATE
     Indication: HYPERTENSION
     Route: 048

REACTIONS (20)
  - Chest pain [Recovering/Resolving]
  - Pain in extremity [Recovering/Resolving]
  - Oropharyngeal pain [Recovering/Resolving]
  - Hot flush [Recovered/Resolved]
  - Hyperhidrosis [Recovering/Resolving]
  - Back pain [Unknown]
  - Injection site paraesthesia [Recovering/Resolving]
  - Dizziness [Recovering/Resolving]
  - Chest pain [Unknown]
  - Back pain [Recovering/Resolving]
  - Back pain [Recovering/Resolving]
  - Endometriosis [Unknown]
  - Nausea [Recovering/Resolving]
  - Injection site pain [Recovering/Resolving]
  - Pain in extremity [Unknown]
  - Umbilical hernia repair [Recovered/Resolved]
  - Dysmenorrhoea [Not Recovered/Not Resolved]
  - Cough [Recovering/Resolving]
  - Ovarian cystectomy [Recovered/Resolved]
  - Ovarian cyst [Recovered/Resolved]

NARRATIVE: CASE EVENT DATE: 2005
